FAERS Safety Report 9543232 (Version 2)
Quarter: 2013Q3

REPORT INFORMATION
  Report Type: Spontaneous
  Country: US (occurrence: US)
  Receive Date: 20130923
  Receipt Date: 20130923
  Transmission Date: 20140515
  Serious: No
  Sender: FDA-Public Use
  Company Number: US-PURDUE-USA-2011-0080079

PATIENT
  Age: 54 Year
  Sex: Female

DRUGS (9)
  1. DILAUDID TABLET [Suspect]
     Indication: PRODUCT USED FOR UNKNOWN INDICATION
     Dosage: UNK
  2. HUMIRA [Concomitant]
     Indication: CROHN^S DISEASE
     Dosage: 40 MG EVERY OTHER WEEK
     Route: 058
  3. PREDNISONE [Concomitant]
     Indication: PRODUCT USED FOR UNKNOWN INDICATION
     Dosage: 5 MG, QOD
  4. DEXILANT [Concomitant]
     Indication: PRODUCT USED FOR UNKNOWN INDICATION
     Dosage: 60 MG,DAILY
  5. DIPENTUM [Concomitant]
     Indication: PRODUCT USED FOR UNKNOWN INDICATION
     Dosage: 250 MG QID
  6. PROBIOTICS [Concomitant]
     Indication: PRODUCT USED FOR UNKNOWN INDICATION
     Dosage: 2 TABLET, BID
  7. TOVIAZ [Concomitant]
     Indication: PRODUCT USED FOR UNKNOWN INDICATION
     Dosage: 4 MG DAILY, ER
  8. HYOSCYAMINE [Concomitant]
     Indication: PAIN
     Dosage: 0.375 MG, PRN
  9. DONNATAL [Concomitant]
     Indication: CROHN^S DISEASE
     Dosage: 1 TABLET, BID

REACTIONS (1)
  - Drug hypersensitivity [Unknown]
